FAERS Safety Report 6813532-3 (Version None)
Quarter: 2010Q3

REPORT INFORMATION
  Report Type: 
  Country: None (occurrence: None)
  Receive Date: 20100701
  Receipt Date: 20100701
  Transmission Date: 20110219
  Serious: Yes (Other)
  Sender: FDA-Public Use
  Company Number: US-CEPHALON-2010003547

PATIENT
  Sex: Female

DRUGS (4)
  1. NUVIGIL [Suspect]
     Indication: SOMNOLENCE
     Route: 048
     Dates: start: 20100601
  2. RITALIN-SR [Concomitant]
  3. SUMATRIPTAN SUCCINATE (IMITREX) [Concomitant]
     Indication: HEADACHE
  4. BUTALBITAL ACETAMINOPHEN AND CAFFEINE [Concomitant]

REACTIONS (1)
  - CHEST PAIN [None]
